FAERS Safety Report 10688074 (Version 2)
Quarter: 2015Q1

REPORT INFORMATION
  Report Type: Spontaneous
  Country: HU (occurrence: None)
  Receive Date: 20141231
  Receipt Date: 20150130
  Transmission Date: 20150720
  Serious: Yes (Hospitalization)
  Sender: FDA-Public Use
  Company Number: UCM201412-000253

PATIENT
  Age: 69 Year
  Sex: Male
  Weight: 79 kg

DRUGS (8)
  1. SIMVASTATIN (SIMVASTATIN) (SIMVASTATIN) [Concomitant]
     Active Substance: SIMVASTATIN
  2. RAMIPRIL (RAMIPRIL) (RAMIPRIL) [Suspect]
     Active Substance: RAMIPRIL
  3. PIRACETAM (PIRACETAM (PIRACETAM) [Concomitant]
  4. HYDROCHLOROTHIAZIDE (HYDROCHLOROTHIAZIDE) (HYDROCHLOROTHIAZIDE) [Suspect]
     Active Substance: HYDROCHLOROTHIAZIDE
  5. AMILORIDE [Suspect]
     Active Substance: AMILORIDE
  6. LEVOTHYROXINE SODIUM (LEVOTHYROXINE SODIUM) (LEVOTHYROXINE SODIUM) [Concomitant]
     Active Substance: LEVOTHYROXINE SODIUM
  7. FAMOTIDINE (FAMOTIDINE) (FAMOTIDINE) [Concomitant]
     Active Substance: FAMOTIDINE
  8. ASPIRIN (ACETYSALICYLIC ACID) (ACETYSALICYLIC ACID) [Concomitant]

REACTIONS (16)
  - Renal impairment [None]
  - Medication error [None]
  - Tongue dry [None]
  - Treatment noncompliance [None]
  - Atrioventricular block first degree [None]
  - Disorientation [None]
  - Blood glucose increased [None]
  - Skin turgor decreased [None]
  - Sinus bradycardia [None]
  - Nausea [None]
  - Neuropsychiatric syndrome [None]
  - Circulatory collapse [None]
  - Hyponatraemia [None]
  - Hypotension [None]
  - Psychomotor skills impaired [None]
  - Confusional state [None]
